FAERS Safety Report 10243789 (Version 1)
Quarter: 2014Q2

REPORT INFORMATION
  Report Type: Spontaneous
  Country: GB (occurrence: None)
  Receive Date: 20140616
  Receipt Date: 20140616
  Transmission Date: 20141212
  Serious: Yes (Death, Other)
  Sender: FDA-Public Use
  Company Number: FK201402324

PATIENT
  Sex: Male

DRUGS (2)
  1. FLUDARABINE (MANUFACTURER UNKNOWN) (FLUDARABINE PHOSPHATE) (FLUDARABINE PHOSPHATE) [Suspect]
     Indication: ACUTE MYELOID LEUKAEMIA
  2. BUSULFAN (BUSULFAN) (BUSULFAN) [Suspect]
     Indication: ACUTE MYELOID LEUKAEMIA
     Route: 042

REACTIONS (5)
  - Multi-organ failure [None]
  - Venoocclusive disease [None]
  - Bacterial sepsis [None]
  - Off label use [None]
  - Hepatic failure [None]
